FAERS Safety Report 9702524 (Version 1)
Quarter: 2013Q4

REPORT INFORMATION
  Report Type: Other
  Country: US (occurrence: US)
  Receive Date: 20131121
  Receipt Date: 20131121
  Transmission Date: 20140711
  Serious: Yes (Hospitalization)
  Sender: FDA-Public Use
  Company Number: US-FRI-1000051495

PATIENT
  Age: 76 Year
  Sex: Male

DRUGS (5)
  1. NEBIVOLOL [Suspect]
  2. METFORMIN [Concomitant]
  3. GLIMEPIRIDE [Concomitant]
  4. SIMVASTATIN [Concomitant]
  5. RAMIPRIL [Concomitant]

REACTIONS (2)
  - Hodgkin^s disease [Unknown]
  - Cerebral infarction [Unknown]
